FAERS Safety Report 8287282-3 (Version None)
Quarter: 2012Q2

REPORT INFORMATION
  Report Type: 
  Country: None (occurrence: None)
  Receive Date: 20120416
  Receipt Date: 20120416
  Transmission Date: 20120825
  Serious: Yes (Other)
  Sender: FDA-Public Use
  Company Number: None

PATIENT
  Age: 37 Year
  Sex: Female
  Weight: 61.234 kg

DRUGS (1)
  1. CREST PRO-HEALTH MULTI PROTECTION [Suspect]
     Indication: DENTAL CARE
     Dosage: 20ML
     Route: 004
     Dates: start: 20120101, end: 20120410

REACTIONS (1)
  - TOOTH DISCOLOURATION [None]
